APPROVED DRUG PRODUCT: LAMISIL
Active Ingredient: TERBINAFINE HYDROCHLORIDE
Strength: 1%
Dosage Form/Route: CREAM;TOPICAL
Application: N020980 | Product #001
Applicant: KARO HEALTHCARE INC
Approved: Mar 9, 1999 | RLD: Yes | RS: Yes | Type: OTC